FAERS Safety Report 7137536-9 (Version None)
Quarter: 2010Q4

REPORT INFORMATION
  Report Type: 
  Country: None (occurrence: None)
  Receive Date: 20101119
  Receipt Date: 20101027
  Transmission Date: 20110411
  Serious: Yes (Other)
  Sender: FDA-Public Use
  Company Number: 2010BI038085

PATIENT
  Age: 61 Year
  Sex: Male

DRUGS (2)
  1. ZEVALIN [Suspect]
     Indication: FOLLICLE CENTRE LYMPHOMA, FOLLICULAR GRADE I, II, III
     Dosage: ; 1X; IV
     Route: 042
     Dates: start: 20091117, end: 20091125
  2. RITUXIMAB [Concomitant]

REACTIONS (2)
  - PNEUMATOSIS INTESTINALIS [None]
  - PSEUDOLYMPHOMA [None]
